FAERS Safety Report 5126473-7 (Version None)
Quarter: 2006Q4

REPORT INFORMATION
  Report Type: 
  Country: None (occurrence: None)
  Receive Date: 20061010
  Receipt Date: 20060929
  Transmission Date: 20070319
  Serious: Yes (Death, Other)
  Sender: FDA-Public Use
  Company Number: 2006103149

PATIENT
  Age: 67 Year
  Sex: Female

DRUGS (13)
  1. GEODON [Suspect]
     Indication: OBSESSIVE-COMPULSIVE DISORDER
     Dosage: 80 MG 40 MG, 2 IN 1 D), ORAL
     Route: 048
     Dates: start: 20060508
  2. CELEBREX [Concomitant]
  3. COMBIVENT [Concomitant]
  4. LISINOPRIL [Concomitant]
  5. PAXIL [Concomitant]
  6. METHOTREXATE [Concomitant]
  7. FOSAMAX [Concomitant]
  8. PREVACID [Concomitant]
  9. MULTI-VITAMINS [Concomitant]
  10. CALCIUM (CALCIUM) [Concomitant]
  11. HYDROCHLOROTHIAZIDE [Concomitant]
  12. NEXIUM [Concomitant]
  13. LOVASTATIN [Concomitant]

REACTIONS (1)
  - SUDDEN DEATH [None]
